FAERS Safety Report 6539448-8 (Version None)
Quarter: 2010Q1

REPORT INFORMATION
  Report Type: 
  Country: None (occurrence: None)
  Receive Date: 20100115
  Receipt Date: 20100106
  Transmission Date: 20100710
  Serious: Yes (Other)
  Sender: FDA-Public Use
  Company Number: GB-ABBOTT-09P-167-0576761-00

PATIENT
  Age: 45 Year
  Sex: Male

DRUGS (8)
  1. VALPROATE SEMISODIUM [Suspect]
     Indication: DRUG USE FOR UNKNOWN INDICATION
  2. PHENYTOIN [Suspect]
     Indication: EPILEPSY
     Dates: start: 20060401
  3. PHENYTOIN [Suspect]
     Dates: end: 20090201
  4. PHENYTOIN [Suspect]
     Dates: start: 20090201, end: 20090201
  5. PHENYTOIN [Suspect]
     Dates: start: 20090201
  6. LACOSAMIDE [Suspect]
     Indication: EPILEPSY
     Route: 048
     Dates: start: 20080915
  7. LACOSAMIDE [Suspect]
     Route: 048
  8. LACOSAMIDE [Suspect]
     Route: 048

REACTIONS (3)
  - DIPLOPIA [None]
  - DRUG LEVEL FLUCTUATING [None]
  - VISION BLURRED [None]
